FAERS Safety Report 23528195 (Version 1)
Quarter: 2024Q1

REPORT INFORMATION
  Report Type: Spontaneous
  Country: US (occurrence: US)
  Receive Date: 20240215
  Receipt Date: 20240215
  Transmission Date: 20240410
  Serious: No
  Sender: FDA-Public Use
  Company Number: US-TAKEDA-2024TUS013894

PATIENT
  Age: 11 Year
  Sex: Male
  Weight: 22.676 kg

DRUGS (6)
  1. VYVANSE [Suspect]
     Active Substance: LISDEXAMFETAMINE DIMESYLATE
     Indication: Attention deficit hyperactivity disorder
     Dosage: 30 MILLIGRAM, QD
     Route: 065
     Dates: end: 202310
  2. ADDERALL XR [Suspect]
     Active Substance: AMPHETAMINE ASPARTATE\AMPHETAMINE SULFATE\DEXTROAMPHETAMINE SACCHARATE\DEXTROAMPHETAMINE SULFATE
     Indication: Product used for unknown indication
     Dosage: 20 MILLIGRAM
     Route: 065
     Dates: start: 202310
  3. BACLOFEN [Concomitant]
     Active Substance: BACLOFEN
     Indication: Muscle spasticity
     Dosage: UNK
     Route: 065
  4. IRON [Concomitant]
     Active Substance: IRON
     Indication: Iron deficiency
     Dosage: UNK
     Route: 065
  5. IRON [Concomitant]
     Active Substance: IRON
     Indication: Restless legs syndrome
  6. CLONIDINE [Concomitant]
     Active Substance: CLONIDINE
     Dosage: 0.1 MILLIGRAM
     Route: 065

REACTIONS (2)
  - Disturbance in attention [Unknown]
  - Product availability issue [Unknown]
